FAERS Safety Report 13387221 (Version 1)
Quarter: 2017Q1

REPORT INFORMATION
  Report Type: Spontaneous
  Country: JP (occurrence: JP)
  Receive Date: 20170330
  Receipt Date: 20170330
  Transmission Date: 20170429
  Serious: Yes (Death)
  Sender: FDA-Public Use
  Company Number: JP-ASTELLAS-2015JP014441

PATIENT
  Age: 85 Year
  Sex: Male

DRUGS (3)
  1. XTANDI [Suspect]
     Active Substance: ENZALUTAMIDE
     Indication: PROSTATE CANCER
     Route: 048
     Dates: start: 20150515, end: 20150626
  2. XTANDI [Suspect]
     Active Substance: ENZALUTAMIDE
     Route: 048
     Dates: start: 20151010, end: 20151209
  3. XTANDI [Suspect]
     Active Substance: ENZALUTAMIDE
     Dosage: 40 MG ONCE DAILY FOR 1 WEEK AND INTERRUPTION FOR 1 WEEK ALTERNATELY
     Route: 048
     Dates: start: 20160215

REACTIONS (3)
  - Pneumonia [Fatal]
  - Influenza [Fatal]
  - Hepatic function abnormal [Recovered/Resolved]

NARRATIVE: CASE EVENT DATE: 20150626
